FAERS Safety Report 12615424 (Version 1)
Quarter: 2016Q3

REPORT INFORMATION
  Report Type: Spontaneous
  Country: US (occurrence: PT)
  Receive Date: 20160802
  Receipt Date: 20160802
  Transmission Date: 20161109
  Serious: Yes (Other)
  Sender: FDA-Public Use
  Company Number: US-ELI_LILLY_AND_COMPANY-PT201606010215

PATIENT
  Age: 75 Year
  Sex: Male

DRUGS (6)
  1. CIALIS [Suspect]
     Active Substance: TADALAFIL
     Dosage: 20 MG, UNKNOWN
     Route: 065
  2. CO APROVEL [Concomitant]
     Active Substance: HYDROCHLOROTHIAZIDE\IRBESARTAN
     Indication: HYPERTENSION
     Dosage: 300+25MG, EACH MORNING
     Route: 065
  3. ADALGUR N [Concomitant]
     Active Substance: ACETAMINOPHEN\THIOCOLCHICOSIDE
     Dosage: 500+2MG, TID
     Route: 065
  4. CIALIS [Suspect]
     Active Substance: TADALAFIL
     Indication: PRODUCT USED FOR UNKNOWN INDICATION
     Dosage: 10 MG, UNKNOWN
     Route: 048
  5. NAPROXEN. [Concomitant]
     Active Substance: NAPROXEN
     Dosage: 500 MG, TID
     Route: 065
  6. ADALAT [Concomitant]
     Active Substance: NIFEDIPINE
     Indication: HYPERTENSION
     Dosage: 60 MG, EACH MORNING
     Route: 065

REACTIONS (4)
  - Peripheral swelling [Not Recovered/Not Resolved]
  - Pain in extremity [Recovered/Resolved]
  - Myalgia [Recovered/Resolved]
  - Neck pain [Recovered/Resolved]

NARRATIVE: CASE EVENT DATE: 201606
